FAERS Safety Report 7470320-5 (Version None)
Quarter: 2011Q2

REPORT INFORMATION
  Report Type: 
  Country: None (occurrence: None)
  Receive Date: 20110510
  Receipt Date: 20091122
  Transmission Date: 20111010
  Serious: Yes (Death, Hospitalization, Other)
  Sender: FDA-Public Use
  Company Number: US-BAYER-200940630NA

PATIENT
  Age: 71 Year
  Sex: Female
  Weight: 76.19 kg

DRUGS (13)
  1. TRASYLOL [Suspect]
     Indication: CORONARY ARTERY BYPASS
     Dosage: UNK
     Route: 042
     Dates: start: 20030130
  2. VIOXX [Concomitant]
     Dosage: 25 MG, QD
     Route: 048
     Dates: start: 20030113
  3. PROTAMINE SULFATE [Concomitant]
  4. INOCOR [Concomitant]
     Dosage: TITRATE
     Route: 042
     Dates: start: 20030130
  5. LOPRESSOR [Concomitant]
     Indication: ACUTE CORONARY SYNDROME
     Dosage: 12.5 MG, BID
     Route: 048
     Dates: start: 20030113
  6. NITROGLYCERIN [Concomitant]
     Indication: CHEST PAIN
     Dosage: TITRATE,ORAL/IV
     Dates: start: 20030111, end: 20030111
  7. HEPARIN [Concomitant]
  8. PLAVIX [Concomitant]
  9. EPINEPHRINE [Concomitant]
     Dosage: TITRATE
     Route: 042
     Dates: start: 20030130
  10. TRASYLOL [Suspect]
     Indication: MITRAL VALVE REPLACEMENT
     Dosage: UNK
     Dates: start: 20030409
  11. LOVENOX [Concomitant]
     Dosage: 80 MG, BID
     Route: 048
     Dates: start: 20030113, end: 20030115
  12. ACETYLSALICYLIC ACID SRT [Concomitant]
     Dosage: 325 MG, QD
     Route: 048
     Dates: start: 20030111
  13. IMDUR [Concomitant]
     Dosage: 30 MG, QD
     Route: 048

REACTIONS (13)
  - EMOTIONAL DISTRESS [None]
  - UNEVALUABLE EVENT [None]
  - RENAL FAILURE [None]
  - ANXIETY [None]
  - PAIN [None]
  - RENAL INJURY [None]
  - INJURY [None]
  - DEATH [None]
  - STRESS [None]
  - FEAR [None]
  - ANHEDONIA [None]
  - MULTI-ORGAN FAILURE [None]
  - RENAL IMPAIRMENT [None]
